FAERS Safety Report 7416440-2 (Version None)
Quarter: 2011Q2

REPORT INFORMATION
  Report Type: 
  Country: None (occurrence: None)
  Receive Date: 20110414
  Receipt Date: 20110413
  Transmission Date: 20111010
  Serious: Yes (Other)
  Sender: FDA-Public Use
  Company Number: NL-BAYER-2011-031959

PATIENT
  Age: 62 Year
  Sex: Male

DRUGS (1)
  1. ULTRAVIST 300 [Suspect]
     Indication: VASCULAR IMAGING
     Dosage: 100 ML, UNK
     Dates: start: 20110225, end: 20110225

REACTIONS (5)
  - SENSE OF OPPRESSION [None]
  - CHEST DISCOMFORT [None]
  - SWOLLEN TONGUE [None]
  - THROAT TIGHTNESS [None]
  - CHEST PAIN [None]
